FAERS Safety Report 5845780-3 (Version None)
Quarter: 2008Q3

REPORT INFORMATION
  Report Type: 
  Country: None (occurrence: None)
  Receive Date: 20080814
  Receipt Date: 20080728
  Transmission Date: 20090109
  Serious: No
  Sender: FDA-Public Use
  Company Number: US-BOEHRINGER INGELHEIM GMBH, GERMANY-2008-BP-11819BP

PATIENT
  Sex: Female

DRUGS (1)
  1. FLOMAX [Suspect]
     Indication: NEPHROLITHIASIS
     Route: 048
     Dates: start: 20080708, end: 20080710

REACTIONS (2)
  - BREAST MILK DISCOLOURATION [None]
  - SUPPRESSED LACTATION [None]
